FAERS Safety Report 5615876-X (Version None)
Quarter: 2008Q1

REPORT INFORMATION
  Report Type: 
  Country: None (occurrence: None)
  Receive Date: 20080201
  Receipt Date: 20080125
  Transmission Date: 20080703
  Serious: Yes (Other)
  Sender: FDA-Public Use
  Company Number: 2008AP000275

PATIENT
  Age: 34 Year
  Sex: Male

DRUGS (6)
  1. PAROXETINE HCL [Suspect]
     Dosage: 20 MG; QD, 20 MG; QD, 20 MG; QD, 20 MG; QD, 20 MG; QD, 15 MG; QD, 20 MG; QD
     Dates: start: 19960125
  2. PAROXETINE HCL [Suspect]
     Dosage: 20 MG; QD, 20 MG; QD, 20 MG; QD, 20 MG; QD, 20 MG; QD, 15 MG; QD, 20 MG; QD
     Dates: start: 19970523
  3. PAROXETINE HCL [Suspect]
     Dosage: 20 MG; QD, 20 MG; QD, 20 MG; QD, 20 MG; QD, 20 MG; QD, 15 MG; QD, 20 MG; QD
     Dates: start: 19980313
  4. PAROXETINE HCL [Suspect]
     Dosage: 20 MG; QD, 20 MG; QD, 20 MG; QD, 20 MG; QD, 20 MG; QD, 15 MG; QD, 20 MG; QD
     Dates: start: 19990201
  5. PAROXETINE HCL [Suspect]
     Dosage: 20 MG; QD, 20 MG; QD, 20 MG; QD, 20 MG; QD, 20 MG; QD, 15 MG; QD, 20 MG; QD
     Dates: start: 19990805
  6. PAROXETINE HCL [Suspect]
     Dosage: 20 MG; QD, 20 MG; QD, 20 MG; QD, 20 MG; QD, 20 MG; QD, 15 MG; QD, 20 MG; QD
     Dates: start: 19990805

REACTIONS (11)
  - AGGRESSION [None]
  - AGORAPHOBIA [None]
  - ANXIETY [None]
  - CRYING [None]
  - DRUG WITHDRAWAL SYNDROME [None]
  - IRRITABILITY [None]
  - MOOD SWINGS [None]
  - NAUSEA [None]
  - PANIC ATTACK [None]
  - SUICIDAL IDEATION [None]
  - TEARFULNESS [None]
